FAERS Safety Report 4738121-6 (Version None)
Quarter: 2005Q3

REPORT INFORMATION
  Report Type: 
  Country: None (occurrence: None)
  Receive Date: 20050809
  Receipt Date: 20050803
  Transmission Date: 20060218
  Serious: Yes (Hospitalization)
  Sender: FDA-Public Use
  Company Number: 2005CG01341

PATIENT
  Age: 63 Year
  Sex: Male

DRUGS (11)
  1. OMEPRAZOLE [Suspect]
     Route: 048
     Dates: end: 20050705
  2. ISOPTIN [Suspect]
     Route: 048
     Dates: start: 20050702, end: 20050705
  3. TRIATEC FAIBLE [Suspect]
     Route: 048
     Dates: start: 20050702, end: 20050705
  4. PLAVIX [Concomitant]
     Route: 048
  5. TERALITHE [Concomitant]
     Indication: BIPOLAR I DISORDER
     Route: 048
     Dates: start: 19900101
  6. KARDEGIC [Concomitant]
     Route: 048
  7. TAHOR [Concomitant]
  8. NICOPATCH [Concomitant]
  9. SERETIDE [Concomitant]
  10. VENTOLIN [Concomitant]
  11. ACETAMINOPHEN [Concomitant]

REACTIONS (3)
  - BRADYCARDIA [None]
  - HYPOTENSION [None]
  - SINOATRIAL BLOCK [None]
